FAERS Safety Report 25748256 (Version 1)
Quarter: 2025Q3

REPORT INFORMATION
  Report Type: Spontaneous
  Country: CA (occurrence: CA)
  Receive Date: 20250902
  Receipt Date: 20250902
  Transmission Date: 20251020
  Serious: Yes (Other)
  Sender: AMGEN
  Company Number: CA-AMGEN-CANSP2025171477

PATIENT
  Age: 57 Year
  Sex: Female

DRUGS (10)
  1. ADALIMUMAB [Suspect]
     Active Substance: ADALIMUMAB
     Indication: Pyoderma gangrenosum
     Dosage: 40 MILLIGRAM, QWK
     Route: 058
     Dates: start: 202301
  2. TACROLIMUS [Concomitant]
     Active Substance: TACROLIMUS
  3. CLOBETASOL [Concomitant]
     Active Substance: CLOBETASOL
  4. MINOCYCLINE [Concomitant]
     Active Substance: MINOCYCLINE HYDROCHLORIDE
  5. DOXYCYCLINE [Concomitant]
     Active Substance: DOXYCYCLINE
  6. DAPSONE [Concomitant]
     Active Substance: DAPSONE
     Route: 061
  7. DAPSONE [Concomitant]
     Active Substance: DAPSONE
     Dosage: 150 MILLIGRAM, QD
     Route: 061
  8. DAPSONE [Concomitant]
     Active Substance: DAPSONE
     Dosage: 100 MILLIGRAM, QD
     Route: 061
  9. PREDNISONE [Concomitant]
     Active Substance: PREDNISONE
     Dosage: 1 MILLIGRAM/KILOGRAM, QD (TAPERING)
  10. COLCHICINE [Concomitant]
     Active Substance: COLCHICINE

REACTIONS (4)
  - Pyoderma gangrenosum [Recovered/Resolved]
  - Fatigue [Unknown]
  - Palmoplantar pustulosis [Unknown]
  - Off label use [Unknown]

NARRATIVE: CASE EVENT DATE: 20230101
